FAERS Safety Report 4632471-X (Version None)
Quarter: 2005Q2

REPORT INFORMATION
  Report Type: 
  Country: None (occurrence: None)
  Receive Date: 20050411
  Receipt Date: 20050310
  Transmission Date: 20051028
  Serious: Yes (Other)
  Sender: FDA-Public Use
  Company Number: JP-JNJFOC-20050303990

PATIENT

DRUGS (3)
  1. OXYBUTYNIN HYDROCHOLORIDE [Suspect]
     Indication: DRUG USE FOR UNKNOWN INDICATION
     Route: 049
  2. AMEZINIUMETIL SULFATE [Concomitant]
     Dosage: 1.0 T IN THE AM, 0.5 T IN THE PM
  3. MUSCLE RELAXANT [Concomitant]

REACTIONS (1)
  - ORTHOSTATIC HYPOTENSION [None]
